FAERS Safety Report 22088172 (Version 2)
Quarter: 2023Q1

REPORT INFORMATION
  Report Type: Spontaneous
  Country: US (occurrence: US)
  Receive Date: 20230313
  Receipt Date: 20230317
  Transmission Date: 20230417
  Serious: Yes (Other)
  Sender: FDA-Public Use
  Company Number: US-ORGANON-O2303USA000510

PATIENT
  Sex: Female
  Weight: 69.388 kg

DRUGS (1)
  1. NEXPLANON [Suspect]
     Active Substance: ETONOGESTREL
     Indication: Contraception
     Dosage: 1 IMPLANT OF 68 MILLIGRAM (MG) FOR EVERY 3 YEARS IN LEFT ARM
     Route: 058
     Dates: start: 20230126

REACTIONS (5)
  - Device dislocation [Unknown]
  - Mobility decreased [Unknown]
  - Implant site pain [Unknown]
  - Implant site pain [Unknown]
  - Complication associated with device [Recovered/Resolved]

NARRATIVE: CASE EVENT DATE: 20230101
